FAERS Safety Report 9509044 (Version 1)
Quarter: 2013Q1

REPORT INFORMATION
  Report Type: Spontaneous
  Country: US (occurrence: None)
  Receive Date: 20130305
  Receipt Date: 20130305
  Transmission Date: 20140127
  Serious: Yes (Hospitalization)
  Sender: FDA-Public Use
  Company Number: 163-21880-12022956

PATIENT
  Age: 80 Year
  Sex: Female

DRUGS (1)
  1. REVLIMID (LENALIDOMIDE) (25 MILLIGRAM, CAPSULES) [Suspect]
     Indication: PLASMA CELL MYELOMA
     Dosage: DAYS 1-21 AS DIRECTED
     Route: 048
     Dates: start: 20110909

REACTIONS (3)
  - Thrombosis [None]
  - Paraesthesia [None]
  - Hypoaesthesia [None]
